FAERS Safety Report 15169661 (Version 7)
Quarter: 2019Q4

REPORT INFORMATION
  Report Type: Report from Study
  Country: GB (occurrence: GB)
  Receive Date: 20180720
  Receipt Date: 20191210
  Transmission Date: 20200122
  Serious: Yes (Life-Threatening, Hospitalization)
  Sender: FDA-Public Use
  Company Number: GB-ROCHE-2155601

PATIENT
  Age: 55 Year
  Sex: Female

DRUGS (40)
  1. DOCETAXEL. [Suspect]
     Active Substance: DOCETAXEL
     Indication: HER-2 POSITIVE BREAST CANCER
     Route: 042
     Dates: start: 20150709, end: 20151112
  2. DEXAMETHASONE. [Concomitant]
     Active Substance: DEXAMETHASONE
     Route: 048
     Dates: start: 20170318, end: 20170322
  3. DEXAMETHASONE. [Concomitant]
     Active Substance: DEXAMETHASONE
     Route: 048
     Dates: start: 20180307, end: 20180314
  4. TRASTUZUMAB EMTANSINE [Suspect]
     Active Substance: ADO-TRASTUZUMAB EMTANSINE
     Indication: HER-2 POSITIVE BREAST CANCER
     Route: 042
     Dates: start: 20170323
  5. PERTUZUMAB. [Suspect]
     Active Substance: PERTUZUMAB
     Dosage: MANITENANCE DOSE
     Route: 042
     Dates: start: 20150730, end: 20170223
  6. ZOMORPH [Concomitant]
     Active Substance: MORPHINE SULFATE
  7. DEXAMETHASONE. [Concomitant]
     Active Substance: DEXAMETHASONE
     Route: 048
     Dates: start: 20180817, end: 20180823
  8. PREDNISOLONE. [Concomitant]
     Active Substance: PREDNISOLONE
  9. DENOSUMAB [Concomitant]
     Active Substance: DENOSUMAB
  10. ORAMORPH SR SUSTAINED RELEASE [Concomitant]
     Active Substance: MORPHINE SULFATE
     Route: 065
  11. DEXAMETHASONE. [Concomitant]
     Active Substance: DEXAMETHASONE
     Indication: SOMNOLENCE
     Route: 048
     Dates: start: 20170217, end: 20170221
  12. DEXAMETHASONE. [Concomitant]
     Active Substance: DEXAMETHASONE
     Route: 048
     Dates: start: 20180523, end: 20180529
  13. DEXAMETHASONE. [Concomitant]
     Active Substance: DEXAMETHASONE
     Route: 048
     Dates: start: 20180315, end: 20180322
  14. PROCHLORPERAZINE. [Concomitant]
     Active Substance: PROCHLORPERAZINE
  15. ANASTROZOLE. [Suspect]
     Active Substance: ANASTROZOLE
     Indication: HER-2 POSITIVE BREAST CANCER
     Route: 048
     Dates: start: 20151202
  16. TRASTUZUMAB. [Suspect]
     Active Substance: TRASTUZUMAB
     Route: 042
     Dates: start: 20150730, end: 20170223
  17. DEXAMETHASONE. [Concomitant]
     Active Substance: DEXAMETHASONE
     Route: 048
  18. DEXAMETHASONE. [Concomitant]
     Active Substance: DEXAMETHASONE
     Route: 048
     Dates: start: 20170223, end: 20170301
  19. METOCLOPRAMIDE. [Concomitant]
     Active Substance: METOCLOPRAMIDE
  20. PERTUZUMAB. [Suspect]
     Active Substance: PERTUZUMAB
     Indication: HER-2 POSITIVE BREAST CANCER
     Dosage: LOADING DOSE
     Route: 042
     Dates: start: 20150708
  21. CO-AMOXICLAV [AMOXICILLIN;CLAVULANATE POTASSIUM] [Concomitant]
     Active Substance: AMOXICILLIN\CLAVULANATE POTASSIUM
  22. SALBUTAMOL [Concomitant]
     Active Substance: ALBUTEROL
  23. DEXAMETHASONE. [Concomitant]
     Active Substance: DEXAMETHASONE
     Route: 048
     Dates: start: 20180323, end: 20180330
  24. ALVERINE [Concomitant]
     Active Substance: ALVERINE
     Route: 048
  25. FRAGMIN [Concomitant]
     Active Substance: DALTEPARIN SODIUM
  26. DEXAMETHASONE. [Concomitant]
     Active Substance: DEXAMETHASONE
     Route: 048
     Dates: start: 20180516, end: 20180522
  27. DEXAMETHASONE. [Concomitant]
     Active Substance: DEXAMETHASONE
     Route: 048
     Dates: start: 20170302, end: 20170308
  28. DEXAMETHASONE. [Concomitant]
     Active Substance: DEXAMETHASONE
     Route: 048
     Dates: start: 20170315, end: 20170317
  29. CALCICHEW D3 [Concomitant]
     Active Substance: CALCIUM\CHOLECALCIFEROL
  30. MORPHINE SULPHATE [Concomitant]
     Active Substance: MORPHINE SULFATE
  31. DEXAMETHASONE. [Concomitant]
     Active Substance: DEXAMETHASONE
     Route: 048
     Dates: start: 20180530, end: 20180816
  32. LANSOPRAZOLE. [Concomitant]
     Active Substance: LANSOPRAZOLE
  33. CLARITHROMYCIN. [Concomitant]
     Active Substance: CLARITHROMYCIN
  34. TRASTUZUMAB. [Suspect]
     Active Substance: TRASTUZUMAB
     Indication: HER-2 POSITIVE BREAST CANCER
     Route: 042
     Dates: start: 20150708, end: 20150708
  35. NITROFURANTOIN. [Concomitant]
     Active Substance: NITROFURANTOIN
  36. DEXAMETHASONE. [Concomitant]
     Active Substance: DEXAMETHASONE
     Route: 048
     Dates: start: 20180824, end: 20180829
  37. DEXAMETHASONE. [Concomitant]
     Active Substance: DEXAMETHASONE
     Route: 048
     Dates: start: 20170309, end: 20170311
  38. DEXAMETHASONE. [Concomitant]
     Active Substance: DEXAMETHASONE
     Route: 048
     Dates: start: 20170312, end: 20170314
  39. SERETIDE [Concomitant]
     Active Substance: FLUTICASONE PROPIONATE\SALMETEROL XINAFOATE
     Dosage: 2 PUFF
     Route: 065
  40. OMEPRAZOLE. [Concomitant]
     Active Substance: OMEPRAZOLE
     Route: 048
     Dates: start: 20170309

REACTIONS (1)
  - Embolism venous [Recovered/Resolved]

NARRATIVE: CASE EVENT DATE: 20180711
